FAERS Safety Report 13497718 (Version 1)
Quarter: 2017Q2

REPORT INFORMATION
  Report Type: Report from Study
  Country: PK (occurrence: PK)
  Receive Date: 20170428
  Receipt Date: 20170428
  Transmission Date: 20170830
  Serious: Yes (Other)
  Sender: FDA-Public Use
  Company Number: PHHY2017PK053368

PATIENT
  Age: 31 Year
  Sex: Female
  Weight: 50 kg

DRUGS (1)
  1. TASIGNA [Suspect]
     Active Substance: NILOTINIB
     Indication: CHRONIC MYELOID LEUKAEMIA
     Dosage: 600 MG, QD
     Route: 048
     Dates: start: 20160911, end: 20170405

REACTIONS (4)
  - Maternal exposure during pregnancy [Unknown]
  - Haemoglobin decreased [Unknown]
  - Platelet count increased [Unknown]
  - Stillbirth [Unknown]

NARRATIVE: CASE EVENT DATE: 20170405
